FAERS Safety Report 7596278-6 (Version None)
Quarter: 2011Q3

REPORT INFORMATION
  Report Type: 
  Country: None (occurrence: None)
  Receive Date: 20110707
  Receipt Date: 20110628
  Transmission Date: 20111222
  Serious: Yes (Hospitalization)
  Sender: FDA-Public Use
  Company Number: US-AMGEN-USACT2011032800

PATIENT
  Age: 35 Year
  Sex: Male

DRUGS (6)
  1. CYCLOPHOSPHAMIDE [Concomitant]
     Indication: BREAST CANCER
     Dosage: 600 MG/M2, UNK
     Route: 042
     Dates: start: 20100617
  2. PACLITAXEL [Concomitant]
     Indication: BREAST CANCER
     Dosage: 80 MG/M2, UNK
     Route: 042
     Dates: start: 20100617
  3. BEVACIZUMAB [Concomitant]
     Indication: BREAST CANCER
     Dosage: UNK UNK, BLINDED
     Route: 042
     Dates: start: 20100617
  4. PEGFILGRASTIM [Suspect]
     Indication: BREAST CANCER MALE
     Dosage: 6 MG, UNK
     Route: 058
     Dates: start: 20100617
  5. DOXORUBICIN HCL [Concomitant]
     Indication: BREAST CANCER
     Dosage: 60 MG/M2, UNK
     Route: 042
     Dates: start: 20100617
  6. FILGRASTIM [Suspect]
     Indication: BREAST CANCER MALE
     Dosage: 5 A?G/KG, QCYCLE
     Dates: start: 20100617

REACTIONS (1)
  - CONVULSION [None]
